FAERS Safety Report 10747160 (Version 2)
Quarter: 2015Q1

REPORT INFORMATION
  Report Type: Spontaneous
  Country: IT (occurrence: IT)
  Receive Date: 20150129
  Receipt Date: 20150209
  Transmission Date: 20150721
  Serious: Yes (Hospitalization, Other)
  Sender: FDA-Public Use
  Company Number: IT-ACCORD-028240

PATIENT
  Age: 59 Year
  Sex: Male

DRUGS (11)
  1. TIKLID [Concomitant]
     Active Substance: TICLOPIDINE HYDROCHLORIDE
  2. SINVACOR [Concomitant]
     Active Substance: SIMVASTATIN
  3. ESAPENT [Concomitant]
  4. TRIATEC [Concomitant]
     Active Substance: RAMIPRIL
  5. ZYLORIC [Concomitant]
     Active Substance: ALLOPURINOL
  6. MYCOPHENOLATE MOFETIL ACCORD [Suspect]
     Active Substance: MYCOPHENOLATE MOFETIL
     Indication: GLOMERULONEPHRITIS MEMBRANOUS
     Route: 048
     Dates: start: 20140401, end: 20140601
  7. HUMALOG [Concomitant]
     Active Substance: INSULIN LISPRO
  8. CARVEDILOL/CARVEDILOL HYDROCHLODRIDE [Concomitant]
  9. LANTUS [Concomitant]
     Active Substance: INSULIN GLARGINE
  10. LASIX [Concomitant]
     Active Substance: FUROSEMIDE
  11. MEPRAL [Concomitant]
     Active Substance: OMEPRAZOLE SODIUM

REACTIONS (5)
  - Product use issue [Unknown]
  - Acute kidney injury [Recovered/Resolved]
  - Diarrhoea [Recovered/Resolved]
  - Vomiting [Recovered/Resolved]
  - Product substitution issue [Unknown]

NARRATIVE: CASE EVENT DATE: 20140601
